FAERS Safety Report 15478471 (Version 4)
Quarter: 2019Q1

REPORT INFORMATION
  Report Type: Report from Study
  Country: US (occurrence: US)
  Receive Date: 20181009
  Receipt Date: 20190207
  Transmission Date: 20190417
  Serious: No
  Sender: FDA-Public Use
  Company Number: US-ALEXION PHARMACEUTICALS INC.-A201813180

PATIENT
  Sex: Female

DRUGS (1)
  1. STRENSIQ [Suspect]
     Active Substance: ASFOTASE ALFA
     Indication: PRODUCT USED FOR UNKNOWN INDICATION
     Dosage: UNK
     Route: 065

REACTIONS (13)
  - Paraesthesia [Unknown]
  - Injection site pain [Unknown]
  - Tendon pain [Unknown]
  - Muscle spasms [Unknown]
  - Rash macular [Unknown]
  - Pain in extremity [Unknown]
  - Injection site reaction [Unknown]
  - Oropharyngeal pain [Unknown]
  - Scapular dyskinesis [Unknown]
  - Back disorder [Unknown]
  - Pain [Unknown]
  - Tendonitis [Unknown]
  - Dyspnoea [Unknown]
